FAERS Safety Report 8075247-6 (Version None)
Quarter: 2012Q1

REPORT INFORMATION
  Report Type: 
  Country: None (occurrence: None)
  Receive Date: 20120127
  Receipt Date: 20120123
  Transmission Date: 20120608
  Serious: Yes (Death, Life-Threatening, Hospitalization, Other)
  Sender: FDA-Public Use
  Company Number: US-CELGENEUS-163-21880-11071269

PATIENT
  Sex: Male

DRUGS (12)
  1. REVLIMID [Suspect]
     Dosage: 10 MILLIGRAM
     Route: 048
     Dates: start: 20110701
  2. ARANESP [Concomitant]
     Indication: RED BLOOD CELL COUNT DECREASED
     Route: 065
  3. REVLIMID [Suspect]
     Dosage: 15 MILLIGRAM
     Route: 048
     Dates: start: 20110520, end: 20110606
  4. NORVASC [Concomitant]
     Indication: HYPERTENSION
     Route: 065
  5. VELCADE [Concomitant]
     Route: 065
     Dates: end: 20101201
  6. VELCADE [Concomitant]
     Route: 065
  7. DECADRON [Concomitant]
     Dosage: 20 MILLIGRAM
     Route: 065
  8. TEGRETOL [Concomitant]
     Route: 065
  9. NEXIUM [Concomitant]
     Route: 065
  10. REVLIMID [Suspect]
     Indication: MULTIPLE MYELOMA
     Dosage: 25 MILLIGRAM
     Route: 048
     Dates: start: 20110408, end: 20110418
  11. DECADRON [Concomitant]
     Route: 065
     Dates: end: 20101201
  12. FLOMAX [Concomitant]
     Route: 065

REACTIONS (4)
  - MULTIPLE MYELOMA [None]
  - SEPTIC SHOCK [None]
  - PNEUMONIA [None]
  - PANCYTOPENIA [None]
